FAERS Safety Report 7149655-1 (Version None)
Quarter: 2010Q4

REPORT INFORMATION
  Report Type: 
  Country: None (occurrence: None)
  Receive Date: 20101209
  Receipt Date: 20101201
  Transmission Date: 20110411
  Serious: Yes (Hospitalization)
  Sender: FDA-Public Use
  Company Number: JP-MERCK-1012USA01088

PATIENT
  Age: 76 Year
  Sex: Female

DRUGS (4)
  1. FOSAMAX [Suspect]
     Indication: OSTEOPOROSIS
     Route: 048
     Dates: end: 20080908
  2. CRESTOR [Concomitant]
     Indication: HYPERLIPIDAEMIA
     Route: 048
  3. AMLODIPINE BESYLATE [Concomitant]
     Indication: HYPERTENSION
     Route: 048
  4. RENIVEZE [Concomitant]
     Indication: HYPERTENSION
     Route: 048

REACTIONS (1)
  - FEMUR FRACTURE [None]
